FAERS Safety Report 19297390 (Version 5)
Quarter: 2024Q4

REPORT INFORMATION
  Report Type: Spontaneous
  Country: JP (occurrence: JP)
  Receive Date: 20210524
  Receipt Date: 20241127
  Transmission Date: 20250114
  Serious: Yes (Other)
  Sender: CELLTRION
  Company Number: JP-CELLTRION INC.-2020JP023981

PATIENT

DRUGS (10)
  1. INFLIXIMAB [Suspect]
     Active Substance: INFLIXIMAB
     Indication: Colitis ulcerative
     Dosage: 390 MG (WEIGHT: 78 KG)
     Route: 041
     Dates: start: 20181122, end: 20181122
  2. INFLIXIMAB [Suspect]
     Active Substance: INFLIXIMAB
     Dosage: 400 MG (WEIGHT: 80 KG)
     Route: 041
     Dates: start: 20190124, end: 20190124
  3. INFLIXIMAB [Suspect]
     Active Substance: INFLIXIMAB
     Dosage: 400 MG (WEIGHT: 80 KG)
     Route: 041
     Dates: start: 20190321, end: 20190321
  4. INFLIXIMAB [Suspect]
     Active Substance: INFLIXIMAB
     Dosage: 400 MG (WEIGHT: 80 KG)
     Route: 041
     Dates: start: 20190509, end: 20190509
  5. INFLIXIMAB [Suspect]
     Active Substance: INFLIXIMAB
     Dosage: 400 MG (WEIGHT: 80 KG)
     Route: 041
     Dates: start: 20191031, end: 20191031
  6. INFLIXIMAB [Suspect]
     Active Substance: INFLIXIMAB
     Dosage: 400 MG (WEIGHT: 80 KG)
     Route: 041
     Dates: start: 20201119, end: 20201119
  7. INFLIXIMAB [Suspect]
     Active Substance: INFLIXIMAB
     Dosage: 415 MG (WEIGHT: 81 KG)
     Route: 041
     Dates: start: 20211109, end: 20211109
  8. INFLIXIMAB [Suspect]
     Active Substance: INFLIXIMAB
     Dosage: 405 MG (WEIGHT: 80.5 KG)
     Route: 041
     Dates: start: 20221207, end: 20221207
  9. INFLIXIMAB [Suspect]
     Active Substance: INFLIXIMAB
     Dosage: 385 MG (WEIGHT: 76.5 KG)
     Route: 041
     Dates: start: 20231114, end: 20231114
  10. MESALAMINE [Concomitant]
     Active Substance: MESALAMINE
     Dosage: 4000 MILLIGRAM/DAY
     Route: 048

REACTIONS (8)
  - Pharyngotonsillitis [Recovered/Resolved]
  - Gastritis haemorrhagic [Recovered/Resolved]
  - Upper respiratory tract infection [Recovered/Resolved]
  - Nasopharyngitis [Recovered/Resolved]
  - Nasopharyngitis [Recovered/Resolved]
  - Pain in extremity [Not Recovered/Not Resolved]
  - Overdose [Unknown]
  - Intentional product use issue [Unknown]

NARRATIVE: CASE EVENT DATE: 20190109
